FAERS Safety Report 17132540 (Version 1)
Quarter: 2019Q4

REPORT INFORMATION
  Report Type: Spontaneous
  Country: US (occurrence: US)
  Receive Date: 20191210
  Receipt Date: 20191210
  Transmission Date: 20200122
  Serious: No
  Sender: FDA-Public Use
  Company Number: US-009507513-1912USA002623

PATIENT
  Age: 31 Year
  Sex: Female
  Weight: 64.85 kg

DRUGS (1)
  1. NEXPLANON [Suspect]
     Active Substance: ETONOGESTREL
     Indication: CONTRACEPTION
     Dosage: LEFT ARM-IMPLANT, 3 YEARS
     Route: 059
     Dates: start: 20161111

REACTIONS (7)
  - Menstruation irregular [Not Recovered/Not Resolved]
  - Abdominal pain upper [Not Recovered/Not Resolved]
  - Heart rate increased [Not Recovered/Not Resolved]
  - Incorrect product administration duration [Unknown]
  - Menorrhagia [Not Recovered/Not Resolved]
  - Headache [Not Recovered/Not Resolved]
  - Heart rate irregular [Not Recovered/Not Resolved]

NARRATIVE: CASE EVENT DATE: 20161111
